FAERS Safety Report 4801903-6 (Version None)
Quarter: 2005Q4

REPORT INFORMATION
  Report Type: 
  Country: None (occurrence: None)
  Receive Date: 20051014
  Receipt Date: 20051014
  Transmission Date: 20060501
  Serious: Yes (Death)
  Sender: FDA-Public Use
  Company Number: None

PATIENT
  Sex: Female
  Weight: 79.3795 kg

DRUGS (7)
  1. VIVACTIL [Suspect]
     Indication: CHRONIC FATIGUE SYNDROME
     Dosage: 10MG TABLETS 3 X DAILY PO
     Route: 048
     Dates: start: 20050115, end: 20050807
  2. LORAZEPAM [Suspect]
     Indication: CHRONIC FATIGUE SYNDROME
     Dosage: 1 MG TABLETS 4 X DAILY PO
     Route: 048
     Dates: start: 20050412, end: 20050807
  3. WELLBUTRIN [Concomitant]
  4. LUNESTA [Concomitant]
  5. ZOMIG-ZMT [Concomitant]
  6. ULTRAN [Concomitant]
  7. DAVOCET-N [Concomitant]

REACTIONS (2)
  - COMPLETED SUICIDE [None]
  - GUN SHOT WOUND [None]
